FAERS Safety Report 5225465-7 (Version None)
Quarter: 2007Q1

REPORT INFORMATION
  Report Type: 
  Country: None (occurrence: None)
  Receive Date: 20070131
  Receipt Date: 20070124
  Transmission Date: 20070707
  Serious: Yes (Hospitalization, Other)
  Sender: FDA-Public Use
  Company Number: SE-PFIZER INC-2006150055

PATIENT
  Sex: Male

DRUGS (2)
  1. LYRICA [Suspect]
     Indication: INTERVERTEBRAL DISC PROTRUSION
     Route: 048
  2. OXYCONTIN [Concomitant]
     Route: 048

REACTIONS (5)
  - ABSCESS [None]
  - ARTHRALGIA [None]
  - JOINT SWELLING [None]
  - SCAR PAIN [None]
  - SURGERY [None]
